FAERS Safety Report 8774657 (Version 1)
Quarter: 2012Q4

REPORT INFORMATION
  Report Type: 
  Country: IL (occurrence: IL)
  Receive Date: 20120907
  Receipt Date: 20120907
  Transmission Date: 20130627
  Serious: Yes (Other)
  Sender: FDA-Public Use
  Company Number: IL-AMGEN-ISRSP2012056086

PATIENT
  Sex: Male
  Weight: 72 kg

DRUGS (4)
  1. NPLATE [Suspect]
     Indication: IDIOPATHIC THROMBOCYTOPENIC PURPURA
     Dosage: 10 mug/kg, UNK
     Dates: start: 20111109
  2. OMEPRAZOLE [Concomitant]
     Dosage: 20 mg, UNK
  3. PREDNISONE [Concomitant]
     Dosage: 80 mg, UNK
  4. HEXAKAPRON [Concomitant]
     Dosage: 50 mg, UNK

REACTIONS (1)
  - Therapeutic response decreased [Unknown]
